FAERS Safety Report 22664573 (Version 1)
Quarter: 2023Q2

REPORT INFORMATION
  Report Type: Spontaneous
  Country: US (occurrence: None)
  Receive Date: 20230630
  Receipt Date: 20230630
  Transmission Date: 20230722
  Serious: Yes (Hospitalization)
  Sender: FDA-Public Use
  Company Number: None

PATIENT
  Age: 78 Year
  Sex: Female

DRUGS (5)
  1. ASTAGRAF XL [Suspect]
     Active Substance: TACROLIMUS
     Dosage: FREQUENCY : DAILY;?
     Route: 048
  2. PREDNISONE [Concomitant]
     Active Substance: PREDNISONE
  3. PRAVASTATIN [Concomitant]
     Active Substance: PRAVASTATIN
  4. LOSARTAN [Concomitant]
     Active Substance: LOSARTAN
  5. ASPIRIN [Concomitant]
     Active Substance: ASPIRIN

REACTIONS (2)
  - Urinary tract infection [None]
  - Pneumonia [None]

NARRATIVE: CASE EVENT DATE: 20230604
